FAERS Safety Report 18230160 (Version 2)
Quarter: 2020Q4

REPORT INFORMATION
  Report Type: Report from Study
  Country: None (occurrence: US)
  Receive Date: 20200904
  Receipt Date: 20201114
  Transmission Date: 20210113
  Serious: Yes (Hospitalization)
  Sender: FDA-Public Use
  Company Number: US-ABBVIE-20K-163-3548339-00

PATIENT
  Age: 67 Year
  Sex: Male
  Weight: 90.8 kg

DRUGS (1)
  1. HUMIRA [Suspect]
     Active Substance: ADALIMUMAB
     Indication: PSORIASIS
     Dosage: CITRATE FREE
     Route: 058
     Dates: end: 202008

REACTIONS (10)
  - Oxygen saturation abnormal [Unknown]
  - Cardiac murmur [Unknown]
  - Malaise [Unknown]
  - Pericardial effusion [Unknown]
  - Vein disorder [Unknown]
  - Aortic valve disease [Not Recovered/Not Resolved]
  - Aneurysm [Unknown]
  - Chronic obstructive pulmonary disease [Unknown]
  - Acute respiratory failure [Unknown]
  - Pleural effusion [Unknown]

NARRATIVE: CASE EVENT DATE: 202008
